FAERS Safety Report 7113219 (Version 2)
Quarter: 2013Q1

REPORT INFORMATION
  Report Type: Report from Study
  Country: US (occurrence: US)
  Receive Date: 20090912
  Receipt Date: 20130129
  Transmission Date: 20140127
  Serious: No
  Sender: FDA-Public Use
  Company Number: US-ABBOTT-07P-163-0415009-00

PATIENT
  Age: 24 Year
  Sex: Female
  Weight: 63.56 kg

DRUGS (11)
  1. HUMIRA 40 MG/0.8 ML PEN [Suspect]
     Indication: CROHN^S DISEASE
     Route: 058
     Dates: start: 20070422, end: 20080403
  2. PENTASA [Concomitant]
     Indication: CROHN^S DISEASE
     Route: 048
     Dates: start: 20070622, end: 20071231
  3. PENTASA [Concomitant]
     Dates: start: 20080101, end: 20080105
  4. PRENATAL VITAMINS [Concomitant]
     Indication: PREGNANCY
     Route: 048
     Dates: start: 20070814, end: 20080404
  5. MULTIVITAMINS [Concomitant]
     Indication: PRODUCT USED FOR UNKNOWN INDICATION
     Route: 048
     Dates: start: 20070622, end: 20070813
  6. NECON [Concomitant]
     Indication: CONTRACEPTION
     Route: 048
     Dates: start: 20070622, end: 20070806
  7. CAFFEINE [Concomitant]
     Indication: PRODUCT USED FOR UNKNOWN INDICATION
     Route: 048
     Dates: start: 20070622, end: 20070805
  8. CAFFEINE [Concomitant]
     Route: 048
     Dates: start: 20070806, end: 20070828
  9. CAFFEINE [Concomitant]
     Dates: start: 20070829, end: 20080404
  10. ENTOCORT EC [Concomitant]
     Indication: CROHN^S DISEASE
     Route: 048
     Dates: start: 20070622, end: 20070806
  11. IRON [Concomitant]
     Indication: PRODUCT USED FOR UNKNOWN INDICATION
     Route: 048
     Dates: start: 20071101, end: 20080404

REACTIONS (5)
  - Incorrect dose administered [Recovered/Resolved]
  - Dyspepsia [Unknown]
  - Headache [Unknown]
  - Skin infection [Unknown]
  - Crohn^s disease [Unknown]
